FAERS Safety Report 13013734 (Version 2)
Quarter: 2017Q1

REPORT INFORMATION
  Report Type: Spontaneous
  Country: US (occurrence: US)
  Receive Date: 20161209
  Receipt Date: 20170213
  Transmission Date: 20170428
  Serious: No
  Sender: FDA-Public Use
  Company Number: US-ELI_LILLY_AND_COMPANY-US201612001667

PATIENT
  Age: 47 Year
  Sex: Male
  Weight: 87.98 kg

DRUGS (3)
  1. GLYBURIDE. [Concomitant]
     Active Substance: GLYBURIDE
  2. TALTZ [Suspect]
     Active Substance: IXEKIZUMAB
     Indication: PSORIASIS
     Dosage: 80 MG, EVERY TWO WEEKS
     Route: 058
     Dates: start: 20160822
  3. METFORMIN [Concomitant]
     Active Substance: METFORMIN HYDROCHLORIDE

REACTIONS (1)
  - Swelling face [Not Recovered/Not Resolved]

NARRATIVE: CASE EVENT DATE: 201611
